FAERS Safety Report 4585514-6 (Version None)
Quarter: 2005Q1

REPORT INFORMATION
  Report Type: 
  Country: None (occurrence: None)
  Receive Date: 20050217
  Receipt Date: 20041126
  Transmission Date: 20050727
  Serious: Yes (Hospitalization)
  Sender: FDA-Public Use
  Company Number: PHNU2004DE03984

PATIENT
  Age: 70 Year
  Sex: Male
  Weight: 94 kg

DRUGS (1)
  1. TRILEPTAL [Suspect]
     Indication: EPILEPSY
     Dosage: 600 MG, TID
     Route: 048
     Dates: start: 20040913

REACTIONS (2)
  - DYSARTHRIA [None]
  - VISUAL DISTURBANCE [None]
